FAERS Safety Report 4393275-9 (Version None)
Quarter: 2004Q3

REPORT INFORMATION
  Report Type: 
  Country: None (occurrence: None)
  Receive Date: 20040701
  Receipt Date: 20040615
  Transmission Date: 20050211
  Serious: Yes (Life-Threatening)
  Sender: FDA-Public Use
  Company Number: FR_040604300

PATIENT
  Age: 65 Year
  Sex: Female

DRUGS (6)
  1. PROZAC [Suspect]
     Dates: start: 20031224
  2. LEXOMIL (BROMAZEPAM) [Concomitant]
  3. STILNOX (ZOLPIDEM) [Concomitant]
  4. OMEPRAZOLE [Concomitant]
  5. NICARDIPINE HCL [Concomitant]
  6. TAZOCILLINE [Concomitant]

REACTIONS (7)
  - CHOLESTASIS [None]
  - EOSINOPHIL COUNT INCREASED [None]
  - LYMPHADENOPATHY [None]
  - PRURITUS [None]
  - PURPURA [None]
  - PYREXIA [None]
  - RASH MACULO-PAPULAR [None]
